FAERS Safety Report 17819314 (Version 3)
Quarter: 2020Q2

REPORT INFORMATION
  Report Type: Spontaneous
  Country: US (occurrence: US)
  Receive Date: 20200523
  Receipt Date: 20200528
  Transmission Date: 20200714
  Serious: Yes (Hospitalization)
  Sender: FDA-Public Use
  Company Number: US-UNITED THERAPEUTICS-UNT-2020-007642

PATIENT
  Age: 59 Year
  Sex: Female

DRUGS (5)
  1. AMBRISENTAN [Concomitant]
     Active Substance: AMBRISENTAN
     Indication: PULMONARY ARTERIAL HYPERTENSION
     Dosage: 10 MG, QD (DAILY)
     Route: 065
     Dates: start: 20180925
  2. REMODULIN [Suspect]
     Active Substance: TREPROSTINIL
     Dosage: 0.081 ?G/KG, CONTINUING
     Route: 058
     Dates: start: 202005
  3. AMBRISENTAN [Concomitant]
     Active Substance: AMBRISENTAN
     Indication: PULMONARY HYPERTENSION
  4. REMODULIN [Suspect]
     Active Substance: TREPROSTINIL
     Dosage: 0.0405 ?G/KG, CONTINUING
     Route: 058
  5. REMODULIN [Suspect]
     Active Substance: TREPROSTINIL
     Indication: PULMONARY ARTERIAL HYPERTENSION
     Dosage: UNK UNK, CONTINUING
     Route: 058
     Dates: start: 20191218

REACTIONS (6)
  - Therapy interrupted [Unknown]
  - Device use error [Unknown]
  - Abdominal discomfort [Unknown]
  - Incorrect drug administration rate [Unknown]
  - Incorrect dose administered [Unknown]
  - Diarrhoea [Unknown]

NARRATIVE: CASE EVENT DATE: 202005
